FAERS Safety Report 20525044 (Version 1)
Quarter: 2022Q1

REPORT INFORMATION
  Report Type: Spontaneous
  Country: US (occurrence: None)
  Receive Date: 20220225
  Receipt Date: 20220225
  Transmission Date: 20220423
  Serious: No
  Sender: FDA-Public Use
  Company Number: None

PATIENT
  Age: 43 Year
  Sex: Female

DRUGS (2)
  1. COSENTYX [Suspect]
     Active Substance: SECUKINUMAB
     Indication: Psoriatic arthropathy
     Dosage: INJECT 300MG (2 SYRINGEW) SUBCUTANEOUSLY EVERY 4 WEEKS AS DIRECTED?
     Route: 058
     Dates: start: 202201
  2. COSENTYX [Suspect]
     Active Substance: SECUKINUMAB

REACTIONS (1)
  - Nasopharyngitis [None]
